FAERS Safety Report 9522211 (Version 2)
Quarter: 2013Q3

REPORT INFORMATION
  Report Type: Spontaneous
  Country: JP (occurrence: JP)
  Receive Date: 20130913
  Receipt Date: 20130913
  Transmission Date: 20140515
  Serious: Yes (Other)
  Sender: FDA-Public Use
  Company Number: JP-AMGEN-JPNSP2013055937

PATIENT
  Age: 80 Year
  Sex: Male

DRUGS (5)
  1. ARANESP [Suspect]
     Indication: NEPHROGENIC ANAEMIA
     Dosage: 30 MUG, QWK
     Route: 040
     Dates: start: 201206, end: 201306
  2. MIRCERA [Concomitant]
     Dosage: 75 MUG, 1X/2WEEKS
     Route: 042
     Dates: start: 20130710
  3. MIRCERA [Concomitant]
     Dosage: 75 MUG, 1X/2WEEKS
  4. MIRCERA [Concomitant]
     Dosage: 75 MUG, 1X/2WEEKS
  5. MIRCERA [Concomitant]
     Dosage: 75 MUG, 1X/2WEEKS

REACTIONS (2)
  - Neoplasm malignant [Unknown]
  - Drug ineffective [Unknown]
